FAERS Safety Report 6016909-1 (Version None)
Quarter: 2008Q4

REPORT INFORMATION
  Report Type: 
  Country: None (occurrence: None)
  Receive Date: 20081219
  Receipt Date: 20081211
  Transmission Date: 20090506
  Serious: Yes (Other)
  Sender: FDA-Public Use
  Company Number: 2008SP019510

PATIENT
  Age: 60 Year
  Sex: Female
  Weight: 89 kg

DRUGS (6)
  1. VIRAFERONPEG [Suspect]
     Indication: HEPATITIS C
     Dosage: 1.5 MCG/KG; QW; SC, 0.5 MCG/KG; QW;
     Route: 058
     Dates: start: 20070514, end: 20080415
  2. VIRAFERONPEG [Suspect]
     Indication: HEPATITIS C
     Dosage: 1.5 MCG/KG; QW; SC, 0.5 MCG/KG; QW;
     Route: 058
     Dates: start: 20060904
  3. COVERSYL [Concomitant]
  4. LEVOTHYROX [Concomitant]
  5. ORELOX [Concomitant]
  6. SPECIAFOLDINE [Concomitant]

REACTIONS (14)
  - ANAEMIA MACROCYTIC [None]
  - AUTOIMMUNE DISORDER [None]
  - BLOOD DISORDER [None]
  - BRONCHITIS [None]
  - CONDITION AGGRAVATED [None]
  - DRUG TOLERANCE [None]
  - ERYTHEMA MULTIFORME [None]
  - HYPERSPLENISM [None]
  - LEUKAEMIA [None]
  - PANCYTOPENIA [None]
  - SKIN LESION [None]
  - THERAPEUTIC AGENT TOXICITY [None]
  - URTICARIA [None]
  - VASCULITIS [None]
